FAERS Safety Report 17194434 (Version 2)
Quarter: 2020Q1

REPORT INFORMATION
  Report Type: Spontaneous
  Country: US (occurrence: US)
  Receive Date: 20191224
  Receipt Date: 20200127
  Transmission Date: 20200409
  Serious: Yes (Hospitalization, Other)
  Sender: FDA-Public Use
  Company Number: US-ROCHE-2499433

PATIENT
  Age: 82 Year
  Sex: Male

DRUGS (10)
  1. IRBESARTAN. [Concomitant]
     Active Substance: IRBESARTAN
     Indication: PRODUCT USED FOR UNKNOWN INDICATION
     Route: 048
  2. OFEV [Interacting]
     Active Substance: NINTEDANIB
     Route: 048
  3. PREDNISONE. [Interacting]
     Active Substance: PREDNISONE
     Indication: PRODUCT USED FOR UNKNOWN INDICATION
     Route: 065
  4. ANORO ELLIPTA [Concomitant]
     Active Substance: UMECLIDINIUM BROMIDE\VILANTEROL TRIFENATATE
     Indication: PRODUCT USED FOR UNKNOWN INDICATION
     Dosage: 62.5-25 MCG
     Route: 050
     Dates: start: 20180723
  5. ATORVASTATIN CALCIUM. [Concomitant]
     Active Substance: ATORVASTATIN CALCIUM
     Indication: PRODUCT USED FOR UNKNOWN INDICATION
     Route: 048
  6. ESBRIET [Suspect]
     Active Substance: PIRFENIDONE
     Indication: PRODUCT USED FOR UNKNOWN INDICATION
     Route: 065
  7. COUMADIN [Concomitant]
     Active Substance: WARFARIN SODIUM
     Indication: PRODUCT USED FOR UNKNOWN INDICATION
     Route: 048
  8. OFEV [Interacting]
     Active Substance: NINTEDANIB
     Dosage: REDUCED TO 150 MG
     Route: 048
     Dates: start: 20180726
  9. LASIX [Concomitant]
     Active Substance: FUROSEMIDE
     Indication: PRODUCT USED FOR UNKNOWN INDICATION
     Route: 048
  10. OFEV [Interacting]
     Active Substance: NINTEDANIB
     Indication: IDIOPATHIC PULMONARY FIBROSIS
     Dosage: REDUCED TO 150 MG
     Route: 048
     Dates: start: 20180621, end: 20180702

REACTIONS (18)
  - Nausea [Not Recovered/Not Resolved]
  - Feeling abnormal [Unknown]
  - Decreased appetite [Not Recovered/Not Resolved]
  - Swelling [Recovered/Resolved]
  - Gait disturbance [Not Recovered/Not Resolved]
  - Dyspnoea [Not Recovered/Not Resolved]
  - Diarrhoea haemorrhagic [Unknown]
  - Vomiting [Unknown]
  - Fluid retention [Unknown]
  - Retching [Unknown]
  - Weight decreased [Recovered/Resolved]
  - Diarrhoea [Not Recovered/Not Resolved]
  - Skin weeping [Recovered/Resolved]
  - Joint swelling [Unknown]
  - Skin haemorrhage [Unknown]
  - Peripheral swelling [Unknown]
  - Drug interaction [Recovered/Resolved]
  - Cough [Unknown]

NARRATIVE: CASE EVENT DATE: 20180702
